FAERS Safety Report 4830805-4 (Version None)
Quarter: 2005Q4

REPORT INFORMATION
  Report Type: 
  Country: None (occurrence: None)
  Receive Date: 20051117
  Receipt Date: 20050929
  Transmission Date: 20060501
  Serious: Yes (Hospitalization, Disabling)
  Sender: FDA-Public Use
  Company Number: US-MERCK-0510USA00326

PATIENT
  Age: 53 Year
  Sex: Male
  Weight: 109 kg

DRUGS (2)
  1. VIOXX [Suspect]
     Indication: PAIN
     Route: 048
     Dates: end: 20020101
  2. VIOXX [Suspect]
     Route: 048
     Dates: start: 19990805, end: 20010613

REACTIONS (6)
  - ANGINA PECTORIS [None]
  - BACK INJURY [None]
  - CARDIAC FAILURE CONGESTIVE [None]
  - JOINT INJURY [None]
  - MYOCARDIAL INFARCTION [None]
  - OVERDOSE [None]
